FAERS Safety Report 7651360-X (Version None)
Quarter: 2011Q3

REPORT INFORMATION
  Report Type: 
  Country: None (occurrence: None)
  Receive Date: 20110802
  Receipt Date: 20110721
  Transmission Date: 20111222
  Serious: Yes (Hospitalization, Other)
  Sender: FDA-Public Use
  Company Number: PHEH2007US07738

PATIENT
  Sex: Female

DRUGS (41)
  1. CIPROFLAXACIN [Concomitant]
     Dosage: 500 MG, BID
     Route: 048
  2. MIDAZOLAM HCL [Concomitant]
  3. UNASYN [Concomitant]
  4. PROMETHAZINE [Concomitant]
     Dosage: 12.5 MG, UNK
     Route: 042
     Dates: start: 20070205, end: 20070205
  5. TAXOL [Concomitant]
     Indication: NON-SMALL CELL LUNG CANCER
     Dates: start: 20051001
  6. CARBIDOPA + LEVODOPA [Concomitant]
     Dosage: 25/100 ONE TABLET EVERY BEDTIME
  7. NEUPOGEN [Concomitant]
     Dosage: 300 MCG
     Dates: start: 20070703, end: 20070717
  8. DECADRON [Concomitant]
  9. AVASTIN [Concomitant]
     Indication: NON-SMALL CELL LUNG CANCER
     Dates: start: 20030801, end: 20040901
  10. TARCEVA [Concomitant]
     Indication: NON-SMALL CELL LUNG CANCER
     Dates: start: 20050901
  11. VERSED [Concomitant]
     Dosage: 2 MG, UNK
     Dates: start: 20070205, end: 20070205
  12. PROPOFOL [Concomitant]
     Dosage: 50 MG,
     Dates: start: 20061211, end: 20061211
  13. LIDOCAINE [Concomitant]
     Dosage: 5.4 ML 2%
     Dates: start: 20061211, end: 20061211
  14. TYLENOL-500 [Concomitant]
  15. ONDANSETRON [Concomitant]
     Dosage: 4 MG, Q6H, PRN
  16. NARCAN [Concomitant]
  17. VERSED [Concomitant]
     Dosage: 2 MG,
     Dates: start: 20061211, end: 20061211
  18. LIDOCAINE [Concomitant]
     Dosage: 5.4 ML 2%
     Dates: start: 20070205, end: 20070205
  19. EFFEXOR [Concomitant]
     Dosage: 150 MG,DAILY
     Route: 048
  20. PREVACID [Concomitant]
     Dosage: 30 MG, DAILY
     Route: 048
  21. COLACE [Concomitant]
     Dosage: 100 MG, BID
  22. ZOMETA [Suspect]
     Indication: HYPERCALCAEMIA OF MALIGNANCY
     Dosage: 4 MG MONTLY
     Dates: start: 20031125, end: 20070323
  23. CISPLATIN [Concomitant]
     Indication: NON-SMALL CELL LUNG CANCER
     Dates: start: 20060501, end: 20061101
  24. NAVELBINE [Concomitant]
     Indication: NON-SMALL CELL LUNG CANCER
     Dates: start: 20030801, end: 20040901
  25. TAXOTERE [Concomitant]
     Indication: NON-SMALL CELL LUNG CANCER
     Dates: start: 20050801, end: 20050901
  26. SUBLIMAZE PRESERVATIVE FREE [Concomitant]
     Dosage: 1 MG, UNK
     Dates: start: 20070205, end: 20070205
  27. RESTORIL [Concomitant]
     Dosage: 12.5 MG, Q6H, PRN
  28. PERIDEX [Concomitant]
  29. LEUKINE [Concomitant]
     Dosage: 500 MCG, UNK
     Dates: start: 20070705, end: 20070711
  30. ACTONEL [Suspect]
  31. CARBOPLATIN [Concomitant]
     Indication: NON-SMALL CELL LUNG CANCER
     Dates: start: 20030801, end: 20040901
  32. PROPOFOL [Concomitant]
     Dosage: 50 MG, UNK
     Dates: start: 20070205, end: 20070205
  33. LORTAB [Concomitant]
  34. HEPARIN [Concomitant]
  35. FLAGYL [Concomitant]
     Dosage: 500 MG, BID
     Route: 048
  36. SUBLIMAZE PRESERVATIVE FREE [Concomitant]
     Dosage: 1 ML,
     Dates: start: 20061211, end: 20061211
  37. PROMETHAZINE [Concomitant]
     Dosage: 12.5 MG,
     Route: 042
     Dates: start: 20061211, end: 20061211
  38. KEFZOL [Concomitant]
     Dosage: 1 G, UNK
  39. MORPHINE [Concomitant]
  40. LOVENOX [Concomitant]
     Dosage: 30 MG, Q24H
  41. ROMAZICON [Concomitant]

REACTIONS (44)
  - SKIN ULCER [None]
  - HYPOKALAEMIA [None]
  - DYSTHYMIC DISORDER [None]
  - MAGNESIUM METABOLISM DISORDER [None]
  - DISABILITY [None]
  - HYPERTENSION [None]
  - EPISTAXIS [None]
  - OSTEOMYELITIS CHRONIC [None]
  - CHRONIC SINUSITIS [None]
  - RESTLESS LEGS SYNDROME [None]
  - ERYTHEMA [None]
  - SWELLING [None]
  - OSTEITIS [None]
  - ABDOMINAL PAIN [None]
  - GASTROOESOPHAGEAL REFLUX DISEASE [None]
  - DEPRESSION [None]
  - NECROSIS [None]
  - MALNUTRITION [None]
  - HYPERGLYCAEMIA [None]
  - BONE DISORDER [None]
  - ANHEDONIA [None]
  - BACK PAIN [None]
  - DYSPHAGIA [None]
  - MUSCULOSKELETAL PAIN [None]
  - OSTEOMYELITIS [None]
  - NEOPLASM MALIGNANT [None]
  - ORAL DISORDER [None]
  - METASTASES TO MENINGES [None]
  - WRIST FRACTURE [None]
  - HYPOMAGNESAEMIA [None]
  - LUNG NEOPLASM MALIGNANT [None]
  - OSTEONECROSIS OF JAW [None]
  - INJURY [None]
  - PAIN [None]
  - TINNITUS [None]
  - RECTAL HAEMORRHAGE [None]
  - DIZZINESS [None]
  - FALL [None]
  - EMPHYSEMA [None]
  - ANXIETY [None]
  - RENAL FAILURE [None]
  - CONSTIPATION [None]
  - OSTEOPENIA [None]
  - AMNESIA [None]
